FAERS Safety Report 6537692-7 (Version None)
Quarter: 2010Q1

REPORT INFORMATION
  Report Type: 
  Country: None (occurrence: None)
  Receive Date: 20100107
  Receipt Date: 20091222
  Transmission Date: 20100710
  Serious: Yes (Death, Life-Threatening, Hospitalization)
  Sender: FDA-Public Use
  Company Number: DSA_41958_2009

PATIENT
  Age: 77 Year
  Sex: Male

DRUGS (10)
  1. ENALAPRIL MALEATE [Suspect]
     Indication: HYPERTENSIVE HEART DISEASE
     Dosage: (10 MG QD ORAL)
     Route: 048
  2. DIPYRONE INJ [Suspect]
     Indication: PAIN
     Dosage: (1 G QID INTRAVENOUS (NOT OTHERWISE SPECIFIED))
     Route: 042
     Dates: start: 20090612, end: 20090613
  3. ACETAMINOPHEN [Suspect]
     Indication: PAIN
     Dosage: (1 G 1X INTRAVENOUS (NOT OTHERWISE SPECIFIED))
     Route: 042
     Dates: start: 20090613, end: 20090613
  4. HYDROCHLOROTHIAZIDE [Concomitant]
  5. LACTATED RINGER'S [Concomitant]
  6. CALCIUM CHLORIDE /00203801/ [Concomitant]
  7. AMLODIPINE [Concomitant]
  8. ASPIRIN [Concomitant]
  9. PANTOPRAZOLE SODIUM [Concomitant]
  10. ENOXAPARIN SODIUM [Concomitant]

REACTIONS (5)
  - ANGIOEDEMA [None]
  - DYSPNOEA [None]
  - GENERAL PHYSICAL HEALTH DETERIORATION [None]
  - HYPOAESTHESIA ORAL [None]
  - INFECTED EPIDERMAL CYST [None]
